FAERS Safety Report 6377250-0 (Version None)
Quarter: 2009Q3

REPORT INFORMATION
  Report Type: 
  Country: None (occurrence: None)
  Receive Date: 20090925
  Receipt Date: 20090918
  Transmission Date: 20100115
  Serious: Yes (Other)
  Sender: FDA-Public Use
  Company Number: B0594217A

PATIENT
  Age: 12 Year
  Sex: Male

DRUGS (1)
  1. AUGMENTIN '500' [Suspect]
     Indication: TONSILLITIS
     Dosage: 1000MG TWICE PER DAY
     Route: 048
     Dates: start: 20090101, end: 20090101

REACTIONS (2)
  - CONVULSION [None]
  - EPILEPSY [None]
